FAERS Safety Report 12110808 (Version 1)
Quarter: 2016Q1

REPORT INFORMATION
  Report Type: Spontaneous
  Country: JP (occurrence: JP)
  Receive Date: 20160224
  Receipt Date: 20160224
  Transmission Date: 20160526
  Serious: Yes (Hospitalization)
  Sender: FDA-Public Use
  Company Number: JP-PFIZER INC-2016098127

PATIENT
  Age: 85 Year
  Sex: Female

DRUGS (1)
  1. HALCION [Suspect]
     Active Substance: TRIAZOLAM
     Indication: SUICIDE ATTEMPT
     Dosage: 0. 25 MG TABLET AT 5 OR 6 TABLETS, SINGLE
     Route: 048
     Dates: start: 20160214, end: 20160214

REACTIONS (3)
  - Intentional overdose [Unknown]
  - Coma [Recovering/Resolving]
  - Suicide attempt [Unknown]

NARRATIVE: CASE EVENT DATE: 201602
